FAERS Safety Report 17416111 (Version 2)
Quarter: 2020Q1

REPORT INFORMATION
  Report Type: Report from Study
  Country: CO (occurrence: CO)
  Receive Date: 20200213
  Receipt Date: 20200318
  Transmission Date: 20200409
  Serious: Yes (Other)
  Sender: FDA-Public Use
  Company Number: CO-JNJFOC-20200209974

PATIENT
  Age: 47 Year
  Sex: Male
  Weight: 83 kg

DRUGS (2)
  1. STELARA [Suspect]
     Active Substance: USTEKINUMAB
     Indication: PSORIASIS
     Route: 058
     Dates: start: 20170616, end: 20190321
  2. STELARA [Suspect]
     Active Substance: USTEKINUMAB
     Route: 058
     Dates: start: 20190907, end: 20191209

REACTIONS (1)
  - Liver function test abnormal [Not Recovered/Not Resolved]

NARRATIVE: CASE EVENT DATE: 202001
